FAERS Safety Report 7968386-9 (Version None)
Quarter: 2011Q4

REPORT INFORMATION
  Report Type: 
  Country: None (occurrence: None)
  Receive Date: 20111122
  Receipt Date: 20110818
  Transmission Date: 20120403
  Serious: No
  Sender: FDA-Public Use
  Company Number: PHHY2011US69634

PATIENT
  Age: 40 Year
  Sex: Female
  Weight: 64.9 kg

DRUGS (7)
  1. GILENYA [Suspect]
     Indication: MULTIPLE SCLEROSIS
     Dosage: 0.5 MG, DAILY, ORAL
     Route: 048
     Dates: start: 20110728
  2. FISH OIL (FISH OIL) [Concomitant]
  3. VITAMIN B12 [Concomitant]
  4. BISOPROLOL FUM (BISOPROLOL) [Concomitant]
  5. SLEEP CAP [Concomitant]
  6. HYDROCODONE BITARTRATE [Concomitant]
  7. VITAMIN D [Concomitant]

REACTIONS (2)
  - PAIN [None]
  - FATIGUE [None]
